FAERS Safety Report 7327275-3 (Version None)
Quarter: 2011Q1

REPORT INFORMATION
  Report Type: 
  Country: None (occurrence: None)
  Receive Date: 20110302
  Receipt Date: 20110216
  Transmission Date: 20110831
  Serious: Yes (Hospitalization, Other)
  Sender: FDA-Public Use
  Company Number: US-BAYER-2011-017366

PATIENT
  Sex: Male
  Weight: 71.58 kg

DRUGS (32)
  1. SEPTRA [Concomitant]
  2. AMARYL [Concomitant]
  3. RIVAROXABAN [Interacting]
     Dosage: DOSAGE FORM: TABLET
     Route: 048
     Dates: start: 20091003, end: 20091003
  4. TRAZODONE HCL [Concomitant]
  5. ADVAIR DISKUS 100/50 [Concomitant]
  6. RIVAROXABAN [Interacting]
     Dosage: DOSAGE FORM: TABLET
     Route: 048
     Dates: start: 20091004
  7. FLONASE [Concomitant]
  8. LIPITOR [Concomitant]
  9. FUROSEMIDE [Concomitant]
  10. VERSED [Concomitant]
  11. ACETYLSALICYLIC ACID SRT [Suspect]
     Indication: ACUTE CORONARY SYNDROME
     Route: 048
     Dates: end: 20110123
  12. RAMIPRIL [Concomitant]
  13. K-DUR [Concomitant]
  14. LIDODERM [Concomitant]
  15. RIVAROXABAN [Interacting]
     Indication: ACUTE CORONARY SYNDROME
     Dosage: DOSAGE FORM: TABLET
     Route: 048
  16. COLCHICINE [Concomitant]
  17. AVAPRO [Concomitant]
  18. CLOPIDOGREL [Interacting]
     Route: 048
     Dates: end: 20110123
  19. NORVASC [Concomitant]
  20. CIPRO [Concomitant]
  21. COREG [Concomitant]
  22. MESALAMINE [Concomitant]
  23. OMEPRAZOLE [Concomitant]
  24. ALLOPURINOL [Concomitant]
  25. ZOLPIDEM [Concomitant]
  26. CENTRUM SILVER [Concomitant]
  27. ATROVENT [Concomitant]
  28. DEMEROL [Concomitant]
  29. NEURONTIN [Concomitant]
  30. SODIUM CHLORIDE [Concomitant]
  31. PREDNISONE TAB [Concomitant]
  32. ACETAMINOPHEN [Concomitant]
     Dosage: DOSAGE FORM: UNKNOWN

REACTIONS (2)
  - UPPER GASTROINTESTINAL HAEMORRHAGE [None]
  - INTESTINAL OBSTRUCTION [None]
